FAERS Safety Report 8372062-0 (Version None)
Quarter: 2012Q2

REPORT INFORMATION
  Report Type: 
  Country: None (occurrence: None)
  Receive Date: 20120520
  Receipt Date: 20120423
  Transmission Date: 20120825
  Serious: Yes (Hospitalization)
  Sender: FDA-Public Use
  Company Number: PHHY2009KR37483

PATIENT
  Sex: Female
  Weight: 63 kg

DRUGS (1)
  1. EXJADE [Suspect]
     Indication: APLASTIC ANAEMIA
     Dosage: 1250 MG, UNK
     Route: 048
     Dates: start: 20070526, end: 20080701

REACTIONS (3)
  - FACE INJURY [None]
  - BLOOD COUNT ABNORMAL [None]
  - SKIN BACTERIAL INFECTION [None]
